FAERS Safety Report 8577535 (Version 3)
Quarter: 2012Q4

REPORT INFORMATION
  Report Type: Spontaneous
  Country: IT (occurrence: None)
  Receive Date: 20120518
  Receipt Date: 20120816
  Transmission Date: 20130627
  Serious: Yes (Hospitalization, Other)
  Sender: FDA-Public Use
  Company Number: 2011IT0400

PATIENT
  Sex: Female

DRUGS (1)
  1. ORFADIN [Suspect]
     Indication: TYROSINEMIA TYPE I
     Dosage: 44 MG (44 MG, 1 IN 1 D)
     Dates: start: 19910315, end: 20120222

REACTIONS (4)
  - Hepatic cancer [None]
  - Hepatic function abnormal [None]
  - Liver transplant [None]
  - Amino acid level increased [None]
